FAERS Safety Report 15049931 (Version 1)
Quarter: 2018Q2

REPORT INFORMATION
  Report Type: Report from Study
  Country: US (occurrence: US)
  Receive Date: 20180622
  Receipt Date: 20180622
  Transmission Date: 20180711
  Serious: Yes (Hospitalization)
  Sender: FDA-Public Use
  Company Number: US-HLSUS-2018-US-000420

PATIENT
  Age: 60 Year
  Sex: Female
  Weight: 84.37 kg

DRUGS (2)
  1. LITHIUM CARBONATE. [Concomitant]
     Active Substance: LITHIUM CARBONATE
     Indication: AFFECTIVE DISORDER
     Dosage: 900MG PER DAY
     Route: 048
     Dates: end: 20150123
  2. CLOZAPINE. [Suspect]
     Active Substance: CLOZAPINE
     Indication: PSYCHOTIC DISORDER
     Dosage: 150 MG PER DAY
     Route: 048
     Dates: end: 20150120

REACTIONS (6)
  - Affective disorder [Unknown]
  - Emotional distress [Unknown]
  - Psychotic disorder [Unknown]
  - Neutrophil count decreased [Unknown]
  - Psychiatric decompensation [Unknown]
  - Suicidal ideation [Unknown]

NARRATIVE: CASE EVENT DATE: 20150120
